FAERS Safety Report 6516835-5 (Version None)
Quarter: 2009Q4

REPORT INFORMATION
  Report Type: 
  Country: None (occurrence: None)
  Receive Date: 20091223
  Receipt Date: 20091214
  Transmission Date: 20100525
  Serious: Yes (Hospitalization, Other)
  Sender: FDA-Public Use
  Company Number: PHHY2009BE55392

PATIENT
  Age: 67 Year
  Sex: Female

DRUGS (3)
  1. CYCLOSPORINE [Suspect]
     Indication: RENAL TRANSPLANT
  2. AZATHIOPRINE [Suspect]
     Indication: RENAL TRANSPLANT
  3. STEROIDS NOS [Suspect]
     Indication: RENAL TRANSPLANT

REACTIONS (11)
  - AORTIC BYPASS [None]
  - FLUID RETENTION [None]
  - INTESTINAL ADHESION LYSIS [None]
  - PARENTERAL NUTRITION [None]
  - PERIPHERAL ARTERY DISSECTION [None]
  - PERITONEAL DISORDER [None]
  - PERITONITIS BACTERIAL [None]
  - SCLEROSING ENCAPSULATING PERITONITIS [None]
  - SERRATIA INFECTION [None]
  - SMALL INTESTINAL RESECTION [None]
  - SUBILEUS [None]
